FAERS Safety Report 12674424 (Version 1)
Quarter: 2016Q3

REPORT INFORMATION
  Report Type: Spontaneous
  Country: US (occurrence: US)
  Receive Date: 20160822
  Receipt Date: 20160822
  Transmission Date: 20161109
  Serious: No
  Sender: FDA-Public Use
  Company Number: US-BEH-2016058096

PATIENT
  Age: 66 Year
  Sex: Female
  Weight: 70.31 kg

DRUGS (27)
  1. DIPHENHYDRAMINE. [Concomitant]
     Active Substance: DIPHENHYDRAMINE
  2. AVELOX [Concomitant]
     Active Substance: MOXIFLOXACIN HYDROCHLORIDE
  3. PROTONIX [Concomitant]
     Active Substance: PANTOPRAZOLE SODIUM
  4. VITAMIN D [Concomitant]
     Active Substance: CHOLECALCIFEROL
  5. XOPENEX [Concomitant]
     Active Substance: LEVALBUTEROL HYDROCHLORIDE
  6. ZEMAIRA [Suspect]
     Active Substance: .ALPHA.1-PROTEINASE INHIBITOR HUMAN
     Indication: STATUS ASTHMATICUS
  7. ZEMAIRA [Suspect]
     Active Substance: .ALPHA.1-PROTEINASE INHIBITOR HUMAN
     Indication: RHEUMATOID ARTHRITIS
  8. EPIPEN [Concomitant]
     Active Substance: EPINEPHRINE
  9. ASPIRIN. [Concomitant]
     Active Substance: ASPIRIN
  10. ALBUTEROL. [Concomitant]
     Active Substance: ALBUTEROL
  11. EPIPEN [Concomitant]
     Active Substance: EPINEPHRINE
  12. ZEMAIRA [Suspect]
     Active Substance: .ALPHA.1-PROTEINASE INHIBITOR HUMAN
     Indication: ASTHMA
  13. LIDOCAINE. [Concomitant]
     Active Substance: LIDOCAINE
  14. HEPARIN [Concomitant]
     Active Substance: HEPARIN SODIUM
  15. METOPROLOL. [Concomitant]
     Active Substance: METOPROLOL
  16. OXYGEN. [Concomitant]
     Active Substance: OXYGEN
  17. SODIUM CHLORIDE. [Concomitant]
     Active Substance: SODIUM CHLORIDE
  18. IRON [Concomitant]
     Active Substance: IRON
  19. ROPINIROLE. [Concomitant]
     Active Substance: ROPINIROLE
  20. AXERT [Concomitant]
     Active Substance: ALMOTRIPTAN MALATE
  21. CLONAZEPAM. [Concomitant]
     Active Substance: CLONAZEPAM
  22. CYCLOBENZAPRINE [Concomitant]
     Active Substance: CYCLOBENZAPRINE
  23. ZEMAIRA [Suspect]
     Active Substance: .ALPHA.1-PROTEINASE INHIBITOR HUMAN
     Indication: ALPHA-1 ANTI-TRYPSIN DEFICIENCY
     Route: 042
     Dates: start: 20080409
  24. PREDNISONE. [Concomitant]
     Active Substance: PREDNISONE
  25. MIRAPEX [Concomitant]
     Active Substance: PRAMIPEXOLE DIHYDROCHLORIDE
  26. ZANAFLEX [Concomitant]
     Active Substance: TIZANIDINE HYDROCHLORIDE
  27. SPIRIVA [Concomitant]
     Active Substance: TIOTROPIUM BROMIDE MONOHYDRATE

REACTIONS (1)
  - Oedema peripheral [Unknown]

NARRATIVE: CASE EVENT DATE: 20151205
